FAERS Safety Report 10339635 (Version 3)
Quarter: 2014Q3

REPORT INFORMATION
  Report Type: Report from Study
  Country: US (occurrence: US)
  Receive Date: 20140724
  Receipt Date: 20140930
  Transmission Date: 20150326
  Serious: Yes (Other)
  Sender: FDA-Public Use
  Company Number: US-ALEXION-A201402848

PATIENT

DRUGS (2)
  1. SOLIRIS [Suspect]
     Active Substance: ECULIZUMAB
     Indication: HAEMOLYTIC URAEMIC SYNDROME
     Dosage: 1200 MG, Q2W
     Route: 042
     Dates: start: 20111027
  2. TRILEPTAL [Suspect]
     Active Substance: OXCARBAZEPINE
     Indication: CONVULSION
     Dosage: UNK
     Route: 065
     Dates: start: 201406

REACTIONS (6)
  - Convulsion [Unknown]
  - Dizziness [Unknown]
  - Fatigue [Unknown]
  - Dry mouth [Not Recovered/Not Resolved]
  - Tremor [Not Recovered/Not Resolved]
  - Nausea [Unknown]

NARRATIVE: CASE EVENT DATE: 20140728
